FAERS Safety Report 5307181-6 (Version None)
Quarter: 2007Q2

REPORT INFORMATION
  Report Type: 
  Country: None (occurrence: None)
  Receive Date: 20070425
  Receipt Date: 20070213
  Transmission Date: 20071010
  Serious: No
  Sender: FDA-Public Use
  Company Number: US-AMGEN-US210973

PATIENT
  Sex: Female

DRUGS (4)
  1. VECTIBIX [Suspect]
     Indication: COLORECTAL CANCER
     Route: 065
     Dates: start: 20070209
  2. OXALIPLATIN [Concomitant]
     Route: 065
  3. XELODA [Concomitant]
     Route: 065
  4. ALOXI [Concomitant]

REACTIONS (3)
  - NAUSEA [None]
  - NEUROPATHY [None]
  - VOMITING [None]
